FAERS Safety Report 6184332-5 (Version None)
Quarter: 2009Q2

REPORT INFORMATION
  Report Type: 
  Country: None (occurrence: None)
  Receive Date: 20090508
  Receipt Date: 20090427
  Transmission Date: 20091009
  Serious: Yes (Hospitalization)
  Sender: FDA-Public Use
  Company Number: US-WATSON-2009-02999

PATIENT
  Age: 79 Year
  Sex: Male

DRUGS (2)
  1. FENTANYL-50 [Suspect]
     Indication: MUSCULOSKELETAL PAIN
     Dosage: 1 PATCH, Q3DAYS
     Route: 062
     Dates: start: 20090410, end: 20090419
  2. PERCOCET [Concomitant]
     Indication: PAIN
     Dosage: UNK

REACTIONS (10)
  - ANXIETY [None]
  - ASTHENIA [None]
  - CHEST DISCOMFORT [None]
  - CONSTIPATION [None]
  - CRYING [None]
  - DEPRESSED MOOD [None]
  - DYSPNOEA [None]
  - HAEMOGLOBIN DECREASED [None]
  - HOT FLUSH [None]
  - MALAISE [None]
